FAERS Safety Report 6008293-4 (Version None)
Quarter: 2008Q4

REPORT INFORMATION
  Report Type: 
  Country: None (occurrence: None)
  Receive Date: 20081215
  Receipt Date: 20081211
  Transmission Date: 20090506
  Serious: Yes (Hospitalization)
  Sender: FDA-Public Use
  Company Number: 2008SP025200

PATIENT
  Age: 29 Year
  Sex: Female

DRUGS (3)
  1. TEMODAL [Suspect]
     Indication: CHEMOTHERAPY
     Dosage: PO
     Route: 048
     Dates: start: 20080828, end: 20081011
  2. TEGRETOL [Suspect]
     Indication: EPILEPSY
     Dosage: PO
     Route: 048
     Dates: start: 20080801, end: 20081101
  3. SOLUPRED [Concomitant]

REACTIONS (7)
  - DRUG RASH WITH EOSINOPHILIA AND SYSTEMIC SYMPTOMS [None]
  - GENERALISED ERYTHEMA [None]
  - OEDEMA [None]
  - PRURITUS GENERALISED [None]
  - SKIN LESION [None]
  - TRANSAMINASES INCREASED [None]
  - URTICARIA [None]
